FAERS Safety Report 4871644-8 (Version None)
Quarter: 2006Q1

REPORT INFORMATION
  Report Type: 
  Country: None (occurrence: None)
  Receive Date: 20060104
  Receipt Date: 20051209
  Transmission Date: 20060701
  Serious: Yes (Hospitalization)
  Sender: FDA-Public Use
  Company Number: PHBS2005JP18332

PATIENT
  Sex: Female

DRUGS (5)
  1. NEORAL [Suspect]
     Indication: LIVER TRANSPLANT
     Dosage: 25 MG, BID
     Route: 048
     Dates: start: 20050901, end: 20051208
  2. NEORAL [Suspect]
     Dosage: 25 MG/DAY
     Route: 048
     Dates: start: 20051209
  3. TACROLIMUS [Concomitant]
     Indication: LIVER TRANSPLANT
     Dates: end: 20050901
  4. CELLCEPT [Concomitant]
     Indication: LIVER TRANSPLANT
     Dosage: 750 MG/D
     Route: 048
     Dates: start: 20050801
  5. PREDONINE [Concomitant]
     Indication: LIVER TRANSPLANT
     Dosage: 10 MG/D
     Dates: start: 20050801

REACTIONS (6)
  - BLOOD MAGNESIUM ABNORMAL [None]
  - BLOOD PRESSURE SYSTOLIC INCREASED [None]
  - CONVULSION [None]
  - DEPRESSED LEVEL OF CONSCIOUSNESS [None]
  - ENCEPHALOPATHY [None]
  - VISUAL FIELD DEFECT [None]
